FAERS Safety Report 8577427-X (Version None)
Quarter: 2012Q3

REPORT INFORMATION
  Report Type: 
  Country: None (occurrence: None)
  Receive Date: 20120807
  Receipt Date: 20120730
  Transmission Date: 20120928
  Serious: Yes (Other)
  Sender: FDA-Public Use
  Company Number: JP-VERTEX PHARMACEUTICALS INC.-AE-2012-009481

PATIENT
  Age: 69 Year
  Sex: Male

DRUGS (6)
  1. TELAVIC [Suspect]
     Indication: HEPATITIS C
     Route: 048
     Dates: start: 20120611
  2. REBETOL [Concomitant]
     Route: 048
     Dates: start: 20120718
  3. PEG-INTRON [Concomitant]
     Indication: HEPATITIS C
     Route: 058
     Dates: start: 20120611, end: 20120711
  4. PEG-INTRON [Concomitant]
     Route: 058
     Dates: start: 20120712
  5. JUZENTAIHOTO [Concomitant]
     Route: 048
     Dates: start: 20120611
  6. REBETOL [Concomitant]
     Indication: HEPATITIS C
     Route: 048
     Dates: start: 20120611, end: 20120717

REACTIONS (2)
  - NEUTROPHIL COUNT DECREASED [None]
  - ERYTHEMA [None]
